FAERS Safety Report 12896148 (Version 1)
Quarter: 2016Q4

REPORT INFORMATION
  Report Type: Spontaneous
  Country: US (occurrence: US)
  Receive Date: 20161031
  Receipt Date: 20161031
  Transmission Date: 20170207
  Serious: No
  Sender: FDA-Public Use
  Company Number: US-JAZZ-2016-US-016014

PATIENT
  Sex: Female

DRUGS (54)
  1. XYREM [Suspect]
     Active Substance: SODIUM OXYBATE
     Dosage: DOSE ADJUSTMENTS
     Route: 048
     Dates: start: 201004, end: 201505
  2. PREDNISONE. [Concomitant]
     Active Substance: PREDNISONE
  3. SEROQUEL [Concomitant]
     Active Substance: QUETIAPINE FUMARATE
  4. SUCRALFATE. [Concomitant]
     Active Substance: SUCRALFATE
  5. METAMUCIL [Concomitant]
     Active Substance: PLANTAGO SEED
  6. MIRALAX [Concomitant]
     Active Substance: POLYETHYLENE GLYCOL 3350
  7. SENNA [Concomitant]
     Active Substance: SENNA LEAF\SENNOSIDES\SENNOSIDES A AND B
  8. CALCIUM CARBONATE. [Concomitant]
     Active Substance: CALCIUM CARBONATE
  9. METHYLPHENIDATE. [Concomitant]
     Active Substance: METHYLPHENIDATE
  10. PANCRELIPASE. [Concomitant]
     Active Substance: PANCRELIPASE
  11. PRAZOSIN [Concomitant]
     Active Substance: PRAZOSIN
  12. BACLOFEN. [Concomitant]
     Active Substance: BACLOFEN
  13. LAMOTRIGINE. [Concomitant]
     Active Substance: LAMOTRIGINE
  14. CIPRO [Concomitant]
     Active Substance: CIPROFLOXACIN HYDROCHLORIDE
  15. DOCUSATE SODIUM. [Concomitant]
     Active Substance: DOCUSATE SODIUM
  16. LOVASTATIN. [Concomitant]
     Active Substance: LOVASTATIN
  17. VITAMIN D3 [Concomitant]
     Active Substance: CHOLECALCIFEROL
  18. COLACE [Concomitant]
     Active Substance: DOCUSATE SODIUM
  19. DILAUDID [Concomitant]
     Active Substance: HYDROMORPHONE HYDROCHLORIDE
  20. NITROSTAT [Concomitant]
     Active Substance: NITROGLYCERIN
  21. PERCOCET [Concomitant]
     Active Substance: ACETAMINOPHEN\OXYCODONE HYDROCHLORIDE
  22. VOLTAREN [Concomitant]
     Active Substance: DICLOFENAC SODIUM
  23. CLONAZEPAM. [Concomitant]
     Active Substance: CLONAZEPAM
  24. EFFEXOR [Concomitant]
     Active Substance: VENLAFAXINE HYDROCHLORIDE
  25. FERROUS SULFATE. [Concomitant]
     Active Substance: FERROUS SULFATE
  26. MIRAPEX [Concomitant]
     Active Substance: PRAMIPEXOLE DIHYDROCHLORIDE
  27. TRAZODONE [Concomitant]
     Active Substance: TRAZODONE HYDROCHLORIDE
  28. ZANTAC [Concomitant]
     Active Substance: RANITIDINE HYDROCHLORIDE
  29. RITALIN [Concomitant]
     Active Substance: METHYLPHENIDATE HYDROCHLORIDE
  30. TYLENOL EXTRA STRENGTH [Concomitant]
     Active Substance: ACETAMINOPHEN
  31. XYREM [Suspect]
     Active Substance: SODIUM OXYBATE
     Dosage: 3 G, BID
     Route: 048
     Dates: start: 201505
  32. VITAMIN B12 [Concomitant]
     Active Substance: CYANOCOBALAMIN
  33. NAPROXEN. [Concomitant]
     Active Substance: NAPROXEN
  34. ROPINIROLE. [Concomitant]
     Active Substance: ROPINIROLE
  35. HYDROCODONE BITARTRATE AND ACETAMINOPHEN [Concomitant]
     Active Substance: ACETAMINOPHEN\HYDROCODONE BITARTRATE
  36. VITAMIN C [Concomitant]
     Active Substance: ASCORBIC ACID
  37. MULTIVITAMINS [Concomitant]
     Active Substance: VITAMINS
  38. TROSPIUM CHLORIDE. [Concomitant]
     Active Substance: TROSPIUM CHLORIDE
  39. VITAMIN D [Concomitant]
     Active Substance: CHOLECALCIFEROL
  40. RITALIN [Concomitant]
     Active Substance: METHYLPHENIDATE HYDROCHLORIDE
  41. MARIJUANA [Concomitant]
     Active Substance: CANNABIS SATIVA SUBSP. INDICA TOP
  42. XYREM [Suspect]
     Active Substance: SODIUM OXYBATE
     Indication: NARCOLEPSY
     Dosage: 2.25 G, BID
     Route: 048
     Dates: start: 201003, end: 201004
  43. LINZESS [Concomitant]
     Active Substance: LINACLOTIDE
  44. GABAPENTIN. [Concomitant]
     Active Substance: GABAPENTIN
  45. LISINOPRIL. [Concomitant]
     Active Substance: LISINOPRIL
  46. CITALOPRAM [Concomitant]
     Active Substance: CITALOPRAM HYDROBROMIDE
  47. PRAVASTATIN. [Concomitant]
     Active Substance: PRAVASTATIN
  48. PANCREAZE [Concomitant]
     Active Substance: PANCRELIPASE AMYLASE\PANCRELIPASE LIPASE\PANCRELIPASE PROTEASE
  49. ASPIRIN. [Concomitant]
     Active Substance: ASPIRIN
  50. MYRBETRIQ [Concomitant]
     Active Substance: MIRABEGRON
  51. COPAXONE [Concomitant]
     Active Substance: GLATIRAMER ACETATE
  52. OMEPRAZOLE. [Concomitant]
     Active Substance: OMEPRAZOLE
  53. VENTOLIN HFA [Concomitant]
     Active Substance: ALBUTEROL SULFATE
  54. SINGULAIR [Concomitant]
     Active Substance: MONTELUKAST SODIUM

REACTIONS (2)
  - Arthralgia [Not Recovered/Not Resolved]
  - Pain in extremity [Not Recovered/Not Resolved]
